FAERS Safety Report 21956235 (Version 1)
Quarter: 2023Q1

REPORT INFORMATION
  Report Type: Spontaneous
  Country: US (occurrence: US)
  Receive Date: 20230206
  Receipt Date: 20230206
  Transmission Date: 20230417
  Serious: No
  Sender: FDA-Public Use
  Company Number: US-SANOFI-01471017

PATIENT
  Age: 9 Year
  Sex: Male

DRUGS (2)
  1. DUPIXENT [Suspect]
     Active Substance: DUPILUMAB
     Indication: Hypersensitivity
     Dosage: 200MG, QOW
  2. DUPIXENT [Suspect]
     Active Substance: DUPILUMAB
     Dosage: 100 MG QOW

REACTIONS (3)
  - Hordeolum [Unknown]
  - Chalazion [Unknown]
  - Product use in unapproved indication [Unknown]
